FAERS Safety Report 8871822 (Version 1)
Quarter: 2012Q4

REPORT INFORMATION
  Report Type: 
  Country: JP (occurrence: JP)
  Receive Date: 20121030
  Receipt Date: 20121030
  Transmission Date: 20130627
  Serious: Yes (Life-Threatening)
  Sender: FDA-Public Use
  Company Number: JP-009507513-1210JPN007514

PATIENT
  Age: 42 Year
  Sex: Female

DRUGS (11)
  1. REFLEX [Suspect]
     Indication: DEPRESSION
     Dosage: 15 mg, qd
     Route: 048
     Dates: start: 201204, end: 20121004
  2. CLOPIDOGREL [Concomitant]
     Indication: ANGINA PECTORIS
     Dosage: 75 mg, qd
     Route: 048
     Dates: start: 20120205
  3. ASPIRIN [Concomitant]
     Indication: ANGINA PECTORIS
     Dosage: 100 mg, qd
     Route: 048
     Dates: start: 20120205
  4. SPIRONOLACTONE [Concomitant]
     Indication: CARDIAC FAILURE
     Dosage: 25 mg, qd
     Route: 048
     Dates: start: 20120205
  5. DILTIAZEM HYDROCHLORIDE [Concomitant]
     Indication: ANGINA PECTORIS
     Dosage: 200 mg, qd
     Route: 048
     Dates: start: 20120406
  6. ROSUVASTATIN CALCIUM [Concomitant]
     Indication: ANGINA PECTORIS
     Dosage: 1.25 mg, qd
     Route: 048
     Dates: start: 20120519
  7. ETHYL LOFLAZEPATE [Concomitant]
     Indication: DEPRESSION
     Dosage: 1 mg, qd
     Route: 048
     Dates: start: 201204
  8. ISOSORBIDE DINITRATE [Concomitant]
     Indication: ANGINA PECTORIS
     Dosage: 80 mg, qd
     Route: 061
     Dates: start: 20120205
  9. ISOSORBIDE MONONITRATE [Concomitant]
     Indication: ANGINA PECTORIS
     Dosage: 80 mg, qd
     Route: 048
     Dates: start: 20120519
  10. BENIDIPINE HYDROCHLORIDE [Concomitant]
     Indication: ANGINA PECTORIS
     Dosage: 8 mg, qd
     Route: 048
     Dates: start: 20120519
  11. NICORANDIL [Concomitant]
     Indication: ANGINA PECTORIS
     Dosage: 60 mg, qd
     Route: 048
     Dates: start: 20120219

REACTIONS (1)
  - Prinzmetal angina [Recovering/Resolving]
